FAERS Safety Report 8536018 (Version 2)
Quarter: 2012Q4

REPORT INFORMATION
  Report Type: 
  Country: US (occurrence: US)
  Receive Date: 20120430
  Receipt Date: 20121023
  Transmission Date: 20130627
  Serious: Yes (Hospitalization)
  Sender: FDA-Public Use
  Company Number: US-BAYER-2012-040258

PATIENT
  Age: 26 Year
  Sex: Female
  Weight: 88.44 kg

DRUGS (3)
  1. YAZ [Suspect]
     Dosage: UNK
     Dates: start: 20061018, end: 20100326
  2. YASMIN [Suspect]
     Dosage: UNK
     Dates: start: 20050114
  3. XANAX [Concomitant]

REACTIONS (4)
  - Cholelithiasis [None]
  - Pain [None]
  - Injury [None]
  - Cholecystitis chronic [None]
